FAERS Safety Report 13939795 (Version 2)
Quarter: 2018Q2

REPORT INFORMATION
  Report Type: Spontaneous
  Country: GB (occurrence: GB)
  Receive Date: 20170906
  Receipt Date: 20180515
  Transmission Date: 20180711
  Serious: Yes (Death, Hospitalization)
  Sender: FDA-Public Use
  Company Number: GB-TEVA-801816ACC

PATIENT
  Age: 59 Year
  Sex: Male

DRUGS (2)
  1. ANTIRETROVIRAL [Concomitant]
     Indication: HIV INFECTION
     Route: 065
  2. PREDNISOLONE. [Suspect]
     Active Substance: PREDNISOLONE
     Indication: GIARDIASIS
     Route: 048
     Dates: start: 20170502

REACTIONS (4)
  - Pneumocystis jirovecii pneumonia [Fatal]
  - Pneumonia [Fatal]
  - Contraindicated product administered [Fatal]
  - Escherichia bacteraemia [Fatal]
